FAERS Safety Report 14525784 (Version 1)
Quarter: 2018Q1

REPORT INFORMATION
  Report Type: Report from Study
  Country: US (occurrence: US)
  Receive Date: 20180213
  Receipt Date: 20180213
  Transmission Date: 20180509
  Serious: Yes (Other)
  Sender: FDA-Public Use
  Company Number: US-AUROBINDO-AUR-APL-2018-005928

PATIENT
  Age: 28 Year
  Sex: Male

DRUGS (4)
  1. BUSULFAN. [Concomitant]
     Active Substance: BUSULFAN
     Indication: VENOOCCLUSIVE LIVER DISEASE
  2. FLUDARABINE [Concomitant]
     Active Substance: FLUDARABINE PHOSPHATE
     Indication: VENOOCCLUSIVE LIVER DISEASE
  3. METHYLPREDNISOLONE 500MG/VIAL [Suspect]
     Active Substance: METHYLPREDNISOLONE
     Indication: VENOOCCLUSIVE LIVER DISEASE
     Dosage: UNK
     Route: 042
  4. CYCLOPHOSPHAMIDE. [Concomitant]
     Active Substance: CYCLOPHOSPHAMIDE
     Indication: VENOOCCLUSIVE LIVER DISEASE

REACTIONS (2)
  - Acute myeloid leukaemia [Unknown]
  - Hyperglycaemia [Unknown]
